FAERS Safety Report 9049897 (Version 4)
Quarter: 2013Q3

REPORT INFORMATION
  Report Type: Spontaneous
  Country: US (occurrence: US)
  Receive Date: 20130205
  Receipt Date: 20130930
  Transmission Date: 20140515
  Serious: Yes (Hospitalization)
  Sender: FDA-Public Use
  Company Number: US-B.I. PHARMACEUTICALS,INC./RIDGEFIELD-2013-BI-02414BP

PATIENT
  Age: 81 Year
  Sex: Female
  Weight: 64.41 kg

DRUGS (11)
  1. PRADAXA [Suspect]
     Indication: ANTICOAGULANT THERAPY
     Dates: start: 20110606, end: 20110608
  2. PRADAXA [Suspect]
     Indication: ATRIAL FIBRILLATION
  3. ATENOLOL [Concomitant]
     Dosage: 50 MG
     Route: 048
     Dates: start: 20061027
  4. TAMOXIFEN [Concomitant]
     Indication: BREAST CANCER
     Dosage: 20 MG
     Route: 048
  5. DYAZIDE [Concomitant]
  6. MULTAQ [Concomitant]
     Dosage: 800 MG
     Dates: start: 20110411, end: 20110608
  7. POTASSIUM [Concomitant]
     Dosage: 20 MEQ
  8. ANASTROZOLE [Concomitant]
     Dosage: 1 MG
     Route: 048
  9. CHLORTHALIDONE [Concomitant]
     Dosage: 25 MG
  10. LASIX [Concomitant]
     Dosage: 20 MG
  11. AMLODIPINE [Concomitant]
     Dosage: 5 MG
     Route: 048

REACTIONS (2)
  - Gastrointestinal haemorrhage [Recovered/Resolved]
  - Coagulopathy [Unknown]
